FAERS Safety Report 9697544 (Version 1)
Quarter: 2013Q4

REPORT INFORMATION
  Report Type: Spontaneous
  Country: US (occurrence: None)
  Receive Date: 20131119
  Receipt Date: 20131119
  Transmission Date: 20140711
  Serious: Yes (Disabling)
  Sender: FDA-Public Use
  Company Number: None

PATIENT
  Age: 16 Year
  Sex: Male
  Weight: 61.24 kg

DRUGS (1)
  1. VYVANSE [Suspect]
     Indication: ATTENTION DEFICIT/HYPERACTIVITY DISORDER
     Dosage: 30 MG 1 PILL ONCE DAILY BY MOUTH
     Route: 048
     Dates: start: 20130831, end: 20131014

REACTIONS (9)
  - Aggression [None]
  - Irritability [None]
  - Depression [None]
  - Anxiety [None]
  - Syncope [None]
  - Decreased appetite [None]
  - Weight decreased [None]
  - Abdominal pain upper [None]
  - Emotional disorder [None]
